FAERS Safety Report 12228035 (Version 1)
Quarter: 2016Q1

REPORT INFORMATION
  Report Type: Spontaneous
  Country: US (occurrence: None)
  Receive Date: 20160330
  Receipt Date: 20160330
  Transmission Date: 20160526
  Serious: Yes (Other)
  Sender: FDA-Public Use
  Company Number: None

PATIENT
  Age: 36 Year
  Sex: Female
  Weight: 58.97 kg

DRUGS (2)
  1. DAILY VITAMIN [Concomitant]
     Active Substance: VITAMINS
  2. MIRENA [Suspect]
     Active Substance: LEVONORGESTREL
     Dates: start: 20150424

REACTIONS (19)
  - Eczema [None]
  - Arthralgia [None]
  - Mobility decreased [None]
  - Back pain [None]
  - Depressed level of consciousness [None]
  - Vertigo [None]
  - Contact lens intolerance [None]
  - Pain in extremity [None]
  - Head discomfort [None]
  - Exophthalmos [None]
  - Anxiety [None]
  - Oedema peripheral [None]
  - Visual impairment [None]
  - Muscle tightness [None]
  - Amnesia [None]
  - Dizziness [None]
  - Insomnia [None]
  - Migraine [None]
  - Urinary retention [None]

NARRATIVE: CASE EVENT DATE: 20160329
